FAERS Safety Report 6814050-9 (Version None)
Quarter: 2010Q3

REPORT INFORMATION
  Report Type: 
  Country: None (occurrence: None)
  Receive Date: 20100702
  Receipt Date: 20100702
  Transmission Date: 20110219
  Serious: No
  Sender: FDA-Public Use
  Company Number: None

PATIENT
  Age: 11 Year
  Sex: Male
  Weight: 33.1126 kg

DRUGS (1)
  1. CHILDREN'S MOTRIN [Suspect]
     Indication: HEADACHE
     Dosage: OVER WEEKS PERIOD
     Dates: start: 20100402, end: 20100428

REACTIONS (1)
  - ABDOMINAL DISCOMFORT [None]
